FAERS Safety Report 15237430 (Version 2)
Quarter: 2018Q3

REPORT INFORMATION
  Report Type: Spontaneous
  Country: SK (occurrence: SK)
  Receive Date: 20180803
  Receipt Date: 20180814
  Transmission Date: 20181010
  Serious: Yes (Other)
  Sender: FDA-Public Use
  Company Number: PHHY2018SK062317

PATIENT
  Sex: Female

DRUGS (1)
  1. AIRFLUSAL [Suspect]
     Active Substance: FLUTICASONE FUROATE\SALMETEROL XINAFOATE
     Indication: ASTHMA
     Dosage: UNK
     Route: 065

REACTIONS (6)
  - Hypersensitivity [Unknown]
  - Respiratory failure [Unknown]
  - Laryngeal oedema [Recovered/Resolved]
  - Paraesthesia oral [Recovered/Resolved]
  - Asthma [Recovered/Resolved]
  - Stridor [Unknown]
